FAERS Safety Report 24725929 (Version 3)
Quarter: 2025Q3

REPORT INFORMATION
  Report Type: Spontaneous
  Country: EU (occurrence: EU)
  Receive Date: 20241212
  Receipt Date: 20250806
  Transmission Date: 20251021
  Serious: Yes (Hospitalization, Other)
  Sender: AUROBINDO
  Company Number: EU-RECORDATI-2024009131

PATIENT
  Age: 70 Year
  Sex: Male

DRUGS (5)
  1. METOPROLOL [Suspect]
     Active Substance: METOPROLOL
     Indication: Cardiac failure acute
     Route: 065
  2. LANDIOLOL [Concomitant]
     Active Substance: LANDIOLOL
     Indication: Cardiac failure acute
     Route: 065
  3. FUROSEMIDE [Concomitant]
     Active Substance: FUROSEMIDE
     Indication: Cardiac failure acute
     Route: 065
  4. DIGOXIN [Concomitant]
     Active Substance: DIGOXIN
     Indication: Cardiac failure acute
     Route: 065
  5. MILRINONE [Concomitant]
     Active Substance: MILRINONE
     Indication: Cardiac failure acute
     Route: 065

REACTIONS (2)
  - Cardiogenic shock [Recovering/Resolving]
  - Contraindicated product administered [Recovered/Resolved]
